FAERS Safety Report 6292275-1 (Version None)
Quarter: 2009Q3

REPORT INFORMATION
  Report Type: 
  Country: None (occurrence: None)
  Receive Date: 20090731
  Receipt Date: 20090721
  Transmission Date: 20100115
  Serious: Yes (Other)
  Sender: FDA-Public Use
  Company Number: GB-SANOFI-SYNTHELABO-A01200907798

PATIENT
  Age: 70 Year
  Sex: Male
  Weight: 82 kg

DRUGS (5)
  1. PRAVASTATIN [Concomitant]
  2. CARBAMAZEPINE [Concomitant]
     Route: 042
  3. ATENOLOL [Concomitant]
  4. ASPIRIN [Concomitant]
  5. OXALIPLATIN [Suspect]
     Dosage: 260 MG
     Route: 042
     Dates: start: 20081128, end: 20081128

REACTIONS (2)
  - DYSARTHRIA [None]
  - EYELID PTOSIS [None]
